FAERS Safety Report 9358116 (Version 1)
Quarter: 2013Q2

REPORT INFORMATION
  Report Type: Spontaneous
  Country: US (occurrence: US)
  Receive Date: 20130620
  Receipt Date: 20130620
  Transmission Date: 20140414
  Serious: Yes (Other)
  Sender: FDA-Public Use
  Company Number: CHPA2013US009957

PATIENT
  Sex: Male

DRUGS (1)
  1. PREVACID 24HR 15MG [Suspect]
     Dosage: UNK, UNK
     Route: 048
     Dates: start: 2013, end: 2013

REACTIONS (8)
  - Drug dependence [Not Recovered/Not Resolved]
  - Palpitations [Recovered/Resolved]
  - Skin exfoliation [Not Recovered/Not Resolved]
  - Muscle spasms [Not Recovered/Not Resolved]
  - Muscle twitching [Not Recovered/Not Resolved]
  - Abdominal discomfort [Not Recovered/Not Resolved]
  - Vomiting [Recovered/Resolved]
  - Aphonia [Not Recovered/Not Resolved]
